FAERS Safety Report 5534166-7 (Version None)
Quarter: 2007Q4

REPORT INFORMATION
  Report Type: 
  Country: None (occurrence: None)
  Receive Date: 20071129
  Receipt Date: 20071129
  Transmission Date: 20080405
  Serious: No
  Sender: FDA-Public Use
  Company Number: None

PATIENT
  Age: 67 Year
  Sex: Male
  Weight: 61.2356 kg

DRUGS (1)
  1. VARENICLINE 1MG TABLETS [Suspect]
     Dosage: 1MG BID PO
     Route: 048
     Dates: start: 20070718, end: 20070723

REACTIONS (1)
  - PALPITATIONS [None]
